FAERS Safety Report 9524695 (Version 3)
Quarter: 2013Q4

REPORT INFORMATION
  Report Type: Spontaneous
  Country: JP (occurrence: JP)
  Receive Date: 20130916
  Receipt Date: 20131024
  Transmission Date: 20140711
  Serious: Yes (Death, Other)
  Sender: FDA-Public Use
  Company Number: PHHY2013JP085672

PATIENT
  Age: 57 Year
  Sex: Female

DRUGS (1)
  1. TEGRETOL [Suspect]
     Indication: EPILEPSY
     Dosage: UNK UKN, UNK
     Route: 048

REACTIONS (5)
  - Pancytopenia [Fatal]
  - Respiratory depression [Unknown]
  - Depressed level of consciousness [Unknown]
  - Hypoxic-ischaemic encephalopathy [Unknown]
  - General physical health deterioration [Unknown]
